FAERS Safety Report 18814223 (Version 2)
Quarter: 2021Q1

REPORT INFORMATION
  Report Type: Spontaneous
  Country: US (occurrence: US)
  Receive Date: 20210201
  Receipt Date: 20210315
  Transmission Date: 20210419
  Serious: No
  Sender: FDA-Public Use
  Company Number: US-ASTRAZENECA-2021A011196

PATIENT
  Age: 72 Year
  Sex: Male
  Weight: 103.4 kg

DRUGS (1)
  1. BYDUREON BCISE [Suspect]
     Active Substance: EXENATIDE
     Indication: DIABETES MELLITUS
     Route: 058
     Dates: start: 2019

REACTIONS (7)
  - Injection site haemorrhage [Unknown]
  - Injection site injury [Unknown]
  - Drug dose omission by device [Unknown]
  - Device leakage [Unknown]
  - Product dose omission issue [Unknown]
  - Device use issue [Unknown]
  - Injection site bruising [Unknown]
